FAERS Safety Report 20739989 (Version 1)
Quarter: 2022Q2

REPORT INFORMATION
  Report Type: Spontaneous
  Country: DE (occurrence: DE)
  Receive Date: 20220422
  Receipt Date: 20220422
  Transmission Date: 20220721
  Serious: Yes (Death)
  Sender: FDA-Public Use
  Company Number: DE-SLATE RUN PHARMACEUTICALS-22DE001038

PATIENT

DRUGS (2)
  1. VORICONAZOLE [Suspect]
     Active Substance: VORICONAZOLE
     Indication: Disseminated aspergillosis
     Dosage: 4 MILLIGRAM PER KILOGRAM, Q 12 HR
  2. VORICONAZOLE [Suspect]
     Active Substance: VORICONAZOLE
     Dosage: 6 MILLIGRAM PER KILOGRAM, Q 12 HR

REACTIONS (3)
  - Multiple organ dysfunction syndrome [Fatal]
  - Sepsis neonatal [Fatal]
  - Off label use [Unknown]
